FAERS Safety Report 15090220 (Version 3)
Quarter: 2019Q4

REPORT INFORMATION
  Report Type: Report from Study
  Country: JP (occurrence: JP)
  Receive Date: 20180629
  Receipt Date: 20191024
  Transmission Date: 20200122
  Serious: Yes (Life-Threatening, Hospitalization, Other)
  Sender: FDA-Public Use
  Company Number: JP-ACTELION-A-CH2018-174353

PATIENT
  Age: 2 Year
  Sex: Male
  Weight: 10.1 kg

DRUGS (4)
  1. GRACEPTOR [Concomitant]
     Active Substance: TACROLIMUS
  2. BRAZAVES [Suspect]
     Active Substance: MIGLUSTAT
     Indication: NIEMANN-PICK DISEASE
     Dosage: 50 MG, BID
     Route: 048
     Dates: start: 20170727
  3. PROGRAF [Concomitant]
     Active Substance: TACROLIMUS
  4. CORTRIL [Concomitant]
     Active Substance: HYDROCORTISONE

REACTIONS (2)
  - Surgery [Unknown]
  - Pneumatosis intestinalis [Recovering/Resolving]

NARRATIVE: CASE EVENT DATE: 20180220
